FAERS Safety Report 8790054 (Version 1)
Quarter: 2012Q4

REPORT INFORMATION
  Report Type: 
  Country: NL (occurrence: NL)
  Receive Date: 20120917
  Receipt Date: 20120917
  Transmission Date: 20130627
  Serious: Yes (Hospitalization)
  Sender: FDA-Public Use
  Company Number: NL-PFIZER INC-2012223810

PATIENT
  Age: 45 Year
  Sex: Female
  Weight: 72.5 kg

DRUGS (10)
  1. GENOTROPIN [Suspect]
     Dosage: 1.2 mg, 1x/day, 7inj/wk
     Route: 058
     Dates: start: 20100210
  2. TRIGYNON [Concomitant]
     Indication: BLOOD LUTEINISING HORMONE DECREASED
     Dosage: UNK
     Dates: start: 19970815
  3. TRIGYNON [Concomitant]
     Indication: BLOOD FOLLICLE STIMULATING HORMONE DECREASED
  4. TRIGYNON [Concomitant]
     Indication: HYPOGONADISM FEMALE
  5. VALSARTAN [Concomitant]
     Indication: ESSENTIAL HYPERTENSION
     Dosage: UNK
     Dates: start: 19980909
  6. ATORVASTATIN [Concomitant]
     Indication: HYPERLIPIDAEMIA
     Dosage: UNK
     Dates: start: 19981008
  7. DIOVANE [Concomitant]
     Indication: ESSENTIAL HYPERTENSION
     Dosage: UNK
     Dates: start: 20000502
  8. AMLODIPINE [Concomitant]
     Indication: ESSENTIAL HYPERTENSION
     Dosage: UNK
     Dates: start: 20001012
  9. LEVOTHYROXINE [Concomitant]
     Indication: BLOOD THYROID STIMULATING HORMONE DECREASED
     Dosage: UNK
     Dates: start: 20071009
  10. LIPITOR [Concomitant]
     Indication: HYPERCHOLESTEROLAEMIA
     Dosage: UNK
     Dates: start: 20090312

REACTIONS (1)
  - Cholelithiasis [Unknown]
